FAERS Safety Report 16480436 (Version 4)
Quarter: 2019Q3

REPORT INFORMATION
  Report Type: Spontaneous
  Country: US (occurrence: US)
  Receive Date: 20190626
  Receipt Date: 20190731
  Transmission Date: 20191004
  Serious: Yes (Hospitalization)
  Sender: FDA-Public Use
  Company Number: US-ACTELION-A-NJ2019-185646

PATIENT
  Age: 81 Year
  Sex: Female
  Weight: 64.85 kg

DRUGS (7)
  1. UPTRAVI [Suspect]
     Active Substance: SELEXIPAG
     Dosage: 400MCG IN PM AND 200 MCG IN AM
     Route: 048
  2. IRON [Concomitant]
     Active Substance: IRON
  3. UPTRAVI [Suspect]
     Active Substance: SELEXIPAG
     Indication: PULMONARY ARTERIAL HYPERTENSION
     Dosage: 200 MCG, BID
     Route: 048
  4. AMLODIPINE [Concomitant]
     Active Substance: AMLODIPINE BESYLATE
  5. OPSUMIT [Suspect]
     Active Substance: MACITENTAN
     Indication: PULMONARY ARTERIAL HYPERTENSION
     Dosage: 10 MG, QD
     Route: 048
     Dates: start: 20170818
  6. WARFARIN [Concomitant]
     Active Substance: WARFARIN
  7. REVATIO [Concomitant]
     Active Substance: SILDENAFIL CITRATE

REACTIONS (11)
  - Blood iron decreased [Unknown]
  - Musculoskeletal pain [Unknown]
  - Head discomfort [Unknown]
  - Pain in jaw [Unknown]
  - Nasopharyngitis [Unknown]
  - Adverse event [Unknown]
  - Transfusion [Recovered/Resolved]
  - Contusion [Unknown]
  - Haemorrhage [Recovered/Resolved]
  - Dependence on oxygen therapy [Unknown]
  - Headache [Unknown]

NARRATIVE: CASE EVENT DATE: 20190628
